FAERS Safety Report 25224729 (Version 1)
Quarter: 2025Q2

REPORT INFORMATION
  Report Type: Report from Study
  Country: US (occurrence: US)
  Receive Date: 20250422
  Receipt Date: 20250422
  Transmission Date: 20250717
  Serious: Yes (Hospitalization, Other)
  Sender: AZURITY PHARMACEUTICALS
  Company Number: US-AZURITY PHARMACEUTICALS, INC.-AZR202504-001044

PATIENT
  Age: 7 Year
  Sex: Female

DRUGS (2)
  1. TRIPTODUR [Suspect]
     Active Substance: TRIPTORELIN
     Indication: Precocious puberty
     Route: 030
     Dates: start: 20241125
  2. TYLENOL [Concomitant]
     Active Substance: ACETAMINOPHEN
     Indication: Product used for unknown indication
     Route: 065

REACTIONS (1)
  - Brain operation [Unknown]

NARRATIVE: CASE EVENT DATE: 20250301
